FAERS Safety Report 6322034-2 (Version None)
Quarter: 2009Q3

REPORT INFORMATION
  Report Type: 
  Country: None (occurrence: None)
  Receive Date: 20090821
  Receipt Date: 20090821
  Transmission Date: 20100115
  Serious: Yes (Other)
  Sender: FDA-Public Use
  Company Number: None

PATIENT
  Age: 65 Year
  Sex: Male
  Weight: 97.3 kg

DRUGS (5)
  1. SULFAMETHOXAZOLE AND TRIMETHOPRIM DOUBLE STRENGTH [Suspect]
     Indication: BIOPSY PROSTATE
     Dosage: 1 TABLET 2 TIMES A DAY ORAL (TWO DOSES ONLY)
     Route: 048
     Dates: start: 20090809
  2. METOPROLOL TARTRATE [Concomitant]
  3. LORAZEPAM [Concomitant]
  4. FLOMAX [Concomitant]
  5. ASPIRIN [Concomitant]

REACTIONS (12)
  - ACNE [None]
  - ANGER [None]
  - BELLIGERENCE [None]
  - CHILLS [None]
  - ESSENTIAL TREMOR [None]
  - INSOMNIA [None]
  - MUSCLE TWITCHING [None]
  - MUSCULOSKELETAL PAIN [None]
  - NECK PAIN [None]
  - POLLAKIURIA [None]
  - SKIN WARM [None]
  - TREMOR [None]
